FAERS Safety Report 24670300 (Version 4)
Quarter: 2025Q3

REPORT INFORMATION
  Report Type: Spontaneous
  Country: CA (occurrence: CA)
  Receive Date: 20241127
  Receipt Date: 20250916
  Transmission Date: 20251021
  Serious: Yes (Death, Hospitalization, Other)
  Sender: MYLAN
  Company Number: CA-MYLANLABS-2024M1105279

PATIENT
  Age: 59 Year
  Sex: Female
  Weight: 54 kg

DRUGS (27)
  1. GABAPENTIN [Suspect]
     Active Substance: GABAPENTIN
     Indication: Cancer pain
     Dosage: 9000 MILLIGRAM, BID (1 EVERY 12 HOURS))
  2. GABAPENTIN [Suspect]
     Active Substance: GABAPENTIN
     Dosage: 900 MILLIGRAM, BID (1 EVERY 12 HOURS))
  3. GABAPENTIN [Suspect]
     Active Substance: GABAPENTIN
  4. GABAPENTIN [Suspect]
     Active Substance: GABAPENTIN
  5. MORPHINE [Suspect]
     Active Substance: MORPHINE
     Indication: Cancer pain
  6. MORPHINE [Suspect]
     Active Substance: MORPHINE
     Indication: Breast cancer metastatic
  7. DEXAMETHASONE [Suspect]
     Active Substance: DEXAMETHASONE
     Indication: Cancer pain
     Dosage: 4 MILLIGRAM, Q8H (1 EVERY 8 HOURS)
  8. DEXAMETHASONE [Suspect]
     Active Substance: DEXAMETHASONE
     Indication: Breast cancer metastatic
  9. DIAZEPAM [Suspect]
     Active Substance: DIAZEPAM
     Indication: Cancer pain
  10. DIAZEPAM [Suspect]
     Active Substance: DIAZEPAM
     Indication: Breast cancer metastatic
     Dosage: 5 MILLIGRAM, Q8H (1 EVERY 8 HOURS)
  11. DIAZEPAM [Suspect]
     Active Substance: DIAZEPAM
  12. METHADONE [Suspect]
     Active Substance: METHADONE HYDROCHLORIDE
     Indication: Cancer pain
     Dosage: 15 MILLIGRAM, TID (1 EVERY 8 HOUR)
  13. METHADONE [Suspect]
     Active Substance: METHADONE HYDROCHLORIDE
     Dosage: 10 MILLIGRAM, BID (1 EVERY 12 HOURS)
  14. METHADONE [Suspect]
     Active Substance: METHADONE HYDROCHLORIDE
  15. METHADONE [Suspect]
     Active Substance: METHADONE HYDROCHLORIDE
  16. METHADONE [Suspect]
     Active Substance: METHADONE HYDROCHLORIDE
  17. METHADOSE SUGAR-FREE [Suspect]
     Active Substance: METHADONE HYDROCHLORIDE
     Indication: Breast cancer metastatic
     Dosage: 10 MILLIGRAM, BID (1 EVERY 12 HOURS)
  18. METHADOSE SUGAR-FREE [Suspect]
     Active Substance: METHADONE HYDROCHLORIDE
     Indication: Breast cancer metastatic
  19. MORPHINE SULFATE\TACRINE HYDROCHLORIDE [Suspect]
     Active Substance: MORPHINE SULFATE\TACRINE HYDROCHLORIDE
     Indication: Cancer pain
  20. DIAZEPAM\MAGALDRATE\OXYPHENONIUM BROMIDE [Suspect]
     Active Substance: DIAZEPAM\MAGALDRATE\OXYPHENONIUM BROMIDE
     Indication: Cancer pain
  21. METHADONE HYDROCHLORIDE [Suspect]
     Active Substance: METHADONE HYDROCHLORIDE
     Indication: Cancer pain
  22. METHADONE HYDROCHLORIDE [Suspect]
     Active Substance: METHADONE HYDROCHLORIDE
  23. METHADONE HYDROCHLORIDE [Suspect]
     Active Substance: METHADONE HYDROCHLORIDE
  24. MAGALDRATE [Suspect]
     Active Substance: MAGALDRATE
     Indication: Cancer pain
  25. OXYPHENONIUM BROMIDE [Suspect]
     Active Substance: OXYPHENONIUM BROMIDE
     Indication: Cancer pain
  26. TACRINE HYDROCHLORIDE [Suspect]
     Active Substance: TACRINE HYDROCHLORIDE
     Indication: Cancer pain
  27. MORPHINE SULFATE [Suspect]
     Active Substance: MORPHINE SULFATE
     Indication: Cancer pain

REACTIONS (7)
  - Disease progression [Fatal]
  - Musculoskeletal chest pain [Fatal]
  - Phyllodes tumour [Fatal]
  - Drug ineffective for unapproved indication [Fatal]
  - Off label use [Fatal]
  - No adverse event [Recovered/Resolved]
  - Drug ineffective [Unknown]
